FAERS Safety Report 7596246-4 (Version None)
Quarter: 2011Q3

REPORT INFORMATION
  Report Type: 
  Country: None (occurrence: None)
  Receive Date: 20110707
  Receipt Date: 20110513
  Transmission Date: 20111222
  Serious: Yes (Hospitalization, Other)
  Sender: FDA-Public Use
  Company Number: JP-PFIZER INC-2011094106

PATIENT
  Age: 68 Year
  Sex: Male
  Weight: 75 kg

DRUGS (9)
  1. OLMESARTAN MEDOXOMIL [Suspect]
     Indication: HYPERTENSION
     Dosage: 20 MG, 1X/DAY
     Route: 048
     Dates: start: 20090227, end: 20100309
  2. METFORMIN HCL [Suspect]
     Indication: DIABETES MELLITUS
     Dosage: 250 MG, 2X/DAY (AFTER BREAKFAST/DINNER)
     Dates: start: 20090201
  3. TIZANIDINE HYDROCHLORIDE [Concomitant]
     Indication: BACK PAIN
     Dosage: 3 MG, 1X/DAY
     Dates: end: 20090201
  4. OLMESARTAN MEDOXOMIL [Suspect]
     Dosage: 10 MG, 1X/DAY
     Route: 048
     Dates: start: 20100310, end: 20100906
  5. AMARYL [Concomitant]
     Indication: DIABETES MELLITUS
     Dosage: 1 MG, UNK
     Route: 048
     Dates: start: 20090227, end: 20101221
  6. PRORENAL [Concomitant]
     Indication: BACK PAIN
     Dosage: 1500 UG, 1X/DAY
     Route: 048
     Dates: end: 20090201
  7. JUVELA [Concomitant]
     Indication: DIABETES MELLITUS
     Dosage: 150 MG, 3X/DAY
     Route: 048
     Dates: start: 20090227, end: 20110117
  8. CELECOXIB [Suspect]
     Indication: BACK PAIN
     Dosage: 100 MG, UNK
     Route: 048
     Dates: end: 20090201
  9. MECOBALAMIN [Concomitant]
     Indication: BACK PAIN
     Dosage: 1500 UG, 1X/DAY
     Route: 048
     Dates: end: 20090201

REACTIONS (7)
  - WEIGHT DECREASED [None]
  - RENAL IMPAIRMENT [None]
  - METABOLIC ACIDOSIS [None]
  - DEHYDRATION [None]
  - ACUTE PRERENAL FAILURE [None]
  - HYPOTENSION [None]
  - HYPERKALAEMIA [None]
